FAERS Safety Report 16853159 (Version 3)
Quarter: 2021Q1

REPORT INFORMATION
  Report Type: Spontaneous
  Country: US (occurrence: US)
  Receive Date: 20190925
  Receipt Date: 20210202
  Transmission Date: 20210419
  Serious: Yes (Other)
  Sender: FDA-Public Use
  Company Number: US-GILEAD-2019-0429655

PATIENT
  Age: 66 Year
  Sex: Male
  Weight: 58.96 kg

DRUGS (43)
  1. ACYCLOVIR [ACICLOVIR] [Concomitant]
     Active Substance: ACYCLOVIR
  2. ECONAZOLE. [Concomitant]
     Active Substance: ECONAZOLE NITRATE
  3. VALACYCLOVIR [Concomitant]
     Active Substance: VALACYCLOVIR HYDROCHLORIDE
  4. BIKTARVY [Concomitant]
     Active Substance: BICTEGRAVIR SODIUM\EMTRICITABINE\TENOFOVIR ALAFENAMIDE FUMARATE
  5. ATOVAQUONE. [Concomitant]
     Active Substance: ATOVAQUONE
  6. GEMFIBROZIL. [Concomitant]
     Active Substance: GEMFIBROZIL
  7. ROSUVASTATIN. [Concomitant]
     Active Substance: ROSUVASTATIN
  8. SILDENAFIL. [Concomitant]
     Active Substance: SILDENAFIL
  9. ISENTRESS [Concomitant]
     Active Substance: RALTEGRAVIR POTASSIUM
  10. FLUCONAZOLE. [Concomitant]
     Active Substance: FLUCONAZOLE
  11. SERTRALINE [Concomitant]
     Active Substance: SERTRALINE HYDROCHLORIDE
  12. TRIMETHOPRIM SULFA [Concomitant]
     Active Substance: TRIMETHOPRIM SULFATE
  13. KALETRA [Concomitant]
     Active Substance: LOPINAVIR\RITONAVIR
  14. ZERIT [Concomitant]
     Active Substance: STAVUDINE
  15. EMTRIVA [Concomitant]
     Active Substance: EMTRICITABINE
  16. CIPROFLOXACIN. [Concomitant]
     Active Substance: CIPROFLOXACIN
  17. ERYTHROMYCIN. [Concomitant]
     Active Substance: ERYTHROMYCIN
  18. LISINOPRIL. [Concomitant]
     Active Substance: LISINOPRIL
  19. PYRIMETHAMINE [Concomitant]
     Active Substance: PYRIMETHAMINE
  20. VIREAD [Suspect]
     Active Substance: TENOFOVIR DISOPROXIL FUMARATE
     Indication: HIV INFECTION
     Dosage: UNK
     Route: 048
     Dates: start: 20011212, end: 20041115
  21. CALCIUM CITRATE [Concomitant]
     Active Substance: CALCIUM CITRATE
  22. EPIVIR [Concomitant]
     Active Substance: LAMIVUDINE
  23. CLARITHROMYCIN. [Concomitant]
     Active Substance: CLARITHROMYCIN
  24. FLUOXETINE [Concomitant]
     Active Substance: FLUOXETINE HYDROCHLORIDE
  25. GATIFLOXACIN. [Concomitant]
     Active Substance: GATIFLOXACIN
  26. CAVERJECT [Concomitant]
     Active Substance: ALPROSTADIL
  27. DIPHENOXYLATE [Concomitant]
     Active Substance: DIPHENOXYLATE
  28. TRUVADA [Suspect]
     Active Substance: EMTRICITABINE\TENOFOVIR DISOPROXIL FUMARATE
     Indication: HIV INFECTION
     Dosage: UNK
     Route: 048
     Dates: start: 20041115, end: 20080926
  29. DIAZEPAM. [Concomitant]
     Active Substance: DIAZEPAM
  30. PANCRELIPASE. [Concomitant]
     Active Substance: PANCRELIPASE
  31. PRAVASTATIN. [Concomitant]
     Active Substance: PRAVASTATIN
  32. TRICOR [ADENOSINE] [Concomitant]
     Active Substance: ADENOSINE
  33. FROVATRIPTAN. [Concomitant]
     Active Substance: FROVATRIPTAN
  34. ATENOLOL. [Concomitant]
     Active Substance: ATENOLOL
  35. FOLIC ACID. [Concomitant]
     Active Substance: FOLIC ACID
  36. HYOSCYAMINE. [Concomitant]
     Active Substance: HYOSCYAMINE
  37. MOXIFLOXACIN. [Concomitant]
     Active Substance: MOXIFLOXACIN
  38. CRIXIVAN [Concomitant]
     Active Substance: INDINAVIR SULFATE
  39. SUSTIVA [Concomitant]
     Active Substance: EFAVIRENZ
  40. REMERON [Concomitant]
     Active Substance: MIRTAZAPINE
  41. ULTRASE [AMYLASE;LIPASE;PROTEASE NOS] [Concomitant]
  42. VITAMIN D3 [Concomitant]
     Active Substance: CHOLECALCIFEROL
  43. IMIQUIMOD. [Concomitant]
     Active Substance: IMIQUIMOD

REACTIONS (17)
  - Foot fracture [Recovered/Resolved]
  - Osteoporosis [Not Recovered/Not Resolved]
  - Osteopenia [Not Recovered/Not Resolved]
  - Pain [Not Recovered/Not Resolved]
  - Loss of personal independence in daily activities [Not Recovered/Not Resolved]
  - Quality of life decreased [Not Recovered/Not Resolved]
  - Lower limb fracture [Unknown]
  - Rib fracture [Unknown]
  - Blood creatinine increased [Not Recovered/Not Resolved]
  - Emotional distress [Not Recovered/Not Resolved]
  - Fear [Not Recovered/Not Resolved]
  - Economic problem [Not Recovered/Not Resolved]
  - Upper limb fracture [Unknown]
  - Bone density decreased [Unknown]
  - Renal impairment [Unknown]
  - Anhedonia [Not Recovered/Not Resolved]
  - Anxiety [Not Recovered/Not Resolved]

NARRATIVE: CASE EVENT DATE: 200408
